FAERS Safety Report 4953178-5 (Version None)
Quarter: 2006Q1

REPORT INFORMATION
  Report Type: 
  Country: None (occurrence: None)
  Receive Date: 20060320
  Receipt Date: 20060313
  Transmission Date: 20060701
  Serious: Yes (Other)
  Sender: FDA-Public Use
  Company Number: 200514435BCC

PATIENT
  Age: 44 Year
  Sex: Female
  Weight: 136.0791 kg

DRUGS (3)
  1. ALEVE [Suspect]
     Indication: BACK PAIN
     Dosage: 440 MG, ONCE, ORAL
     Route: 048
     Dates: start: 20051104
  2. GLUCOTROL [Suspect]
     Dosage: 5 MG, OM, ORAL
     Route: 048
     Dates: start: 20051028
  3. EQUATE [Concomitant]

REACTIONS (13)
  - ANAPHYLACTIC REACTION [None]
  - ASTHENIA [None]
  - BLOOD POTASSIUM DECREASED [None]
  - ELECTROCARDIOGRAM QT PROLONGED [None]
  - ELECTROCARDIOGRAM ST SEGMENT DEPRESSION [None]
  - FALL [None]
  - HEART RATE DECREASED [None]
  - HYPOTENSION [None]
  - LETHARGY [None]
  - LOSS OF CONSCIOUSNESS [None]
  - NAUSEA [None]
  - REFUSAL OF EXAMINATION [None]
  - SOMNOLENCE [None]
